FAERS Safety Report 6435730-3 (Version None)
Quarter: 2009Q4

REPORT INFORMATION
  Report Type: 
  Country: None (occurrence: None)
  Receive Date: 20091111
  Receipt Date: 20091103
  Transmission Date: 20100525
  Serious: Yes (Hospitalization)
  Sender: FDA-Public Use
  Company Number: US-ALEXION-A200900909

PATIENT
  Sex: Male

DRUGS (2)
  1. SOLIRIS [Suspect]
     Indication: PAROXYSMAL NOCTURNAL HAEMOGLOBINURIA
     Dosage: 600 MG QW
     Route: 042
     Dates: start: 20080402, end: 20080422
  2. SOLIRIS [Suspect]
     Dosage: 900 MG Q2W
     Route: 042
     Dates: start: 20080430

REACTIONS (1)
  - HAEMOGLOBIN DECREASED [None]
